FAERS Safety Report 6985428-8 (Version None)
Quarter: 2010Q3

REPORT INFORMATION
  Report Type: 
  Country: None (occurrence: None)
  Receive Date: 20100915
  Receipt Date: 20100903
  Transmission Date: 20110219
  Serious: Yes (Hospitalization)
  Sender: FDA-Public Use
  Company Number: A0814523A

PATIENT
  Sex: Female
  Weight: 118.2 kg

DRUGS (14)
  1. AVANDIA [Suspect]
     Dosage: 8MG PER DAY
     Route: 048
     Dates: start: 19990101
  2. GLUCOTROL XL [Concomitant]
  3. VIOXX [Concomitant]
  4. ESTRACE [Concomitant]
  5. PROVENTIL [Concomitant]
  6. ADVAIR DISKUS 100/50 [Concomitant]
  7. XOPENEX [Concomitant]
  8. HYDROCHLOROTHIAZIDE [Concomitant]
  9. EFFEXOR [Concomitant]
  10. INSULIN [Concomitant]
  11. MIRAPEX [Concomitant]
  12. ALTACE [Concomitant]
  13. ZOVIRAX [Concomitant]
  14. XENICAL [Concomitant]

REACTIONS (2)
  - CARDIAC FAILURE CONGESTIVE [None]
  - TRANSIENT ISCHAEMIC ATTACK [None]
